FAERS Safety Report 4807575-9 (Version None)
Quarter: 2005Q4

REPORT INFORMATION
  Report Type: 
  Country: None (occurrence: None)
  Receive Date: 20051024
  Receipt Date: 20050914
  Transmission Date: 20060501
  Serious: Yes (Other)
  Sender: FDA-Public Use
  Company Number: PHBS2005CA13594

PATIENT
  Age: 33 Year
  Sex: Male

DRUGS (2)
  1. CLOZARIL [Suspect]
     Indication: PSYCHOTIC DISORDER
     Dosage: 700 MG/DAY
     Route: 048
     Dates: start: 19941101, end: 19970101
  2. CLOZARIL [Suspect]
     Dosage: 600 MG/DAY
     Route: 048
     Dates: start: 19971201, end: 20021001

REACTIONS (5)
  - CEREBRAL HAEMORRHAGE [None]
  - DRUG LEVEL BELOW THERAPEUTIC [None]
  - ELECTROENCEPHALOGRAM ABNORMAL [None]
  - FALL [None]
  - STATUS EPILEPTICUS [None]
